FAERS Safety Report 8306142-2 (Version None)
Quarter: 2012Q2

REPORT INFORMATION
  Report Type: 
  Country: None (occurrence: None)
  Receive Date: 20120423
  Receipt Date: 20120416
  Transmission Date: 20120825
  Serious: Yes (Hospitalization, Other)
  Sender: FDA-Public Use
  Company Number: ZA-ABBOTT-12P-143-0906769-00

PATIENT
  Sex: Female

DRUGS (8)
  1. NITROXIN [Concomitant]
     Indication: PRODUCT USED FOR UNKNOWN INDICATION
  2. TRAMADOL HCL [Concomitant]
     Indication: JUVENILE ARTHRITIS
  3. PREDNISONE [Concomitant]
     Indication: JUVENILE ARTHRITIS
  4. METHOTREXATE [Concomitant]
     Indication: JUVENILE ARTHRITIS
  5. HUMIRA [Suspect]
     Indication: JUVENILE ARTHRITIS
     Route: 058
     Dates: start: 20100801, end: 20120301
  6. FOLIC ACID [Concomitant]
     Indication: VITAMIN SUPPLEMENTATION
  7. SIMVACOR [Concomitant]
     Indication: PRODUCT USED FOR UNKNOWN INDICATION
  8. UNKNOWN ANTIBIOTIC [Concomitant]
     Indication: PULMONARY OEDEMA
     Dates: start: 20120417

REACTIONS (10)
  - SYNCOPE [None]
  - TUBERCULOSIS [None]
  - PYREXIA [None]
  - PULMONARY OEDEMA [None]
  - COUGH [None]
  - NIGHT SWEATS [None]
  - VOMITING [None]
  - DECREASED APPETITE [None]
  - DEHYDRATION [None]
  - NAUSEA [None]
